FAERS Safety Report 5402150-X (Version None)
Quarter: 2007Q3

REPORT INFORMATION
  Report Type: 
  Country: None (occurrence: None)
  Receive Date: 20070727
  Receipt Date: 20070713
  Transmission Date: 20080115
  Serious: Yes (Other)
  Sender: FDA-Public Use
  Company Number: 2007S1006447

PATIENT
  Age: 39 Year
  Sex: Female
  Weight: 70.3075 kg

DRUGS (13)
  1. FENTANYL TRANSDERMAL SYSTEM [Suspect]
     Indication: ARTHRITIS
     Dosage: 25 UG/HR; EVERY 3 DAYS; TRANSDERMAL
     Route: 062
     Dates: start: 20070601
  2. FENTANYL TRANSDERMAL SYSTEM [Suspect]
     Indication: BACK PAIN
     Dosage: 25 UG/HR; EVERY 3 DAYS; TRANSDERMAL
     Route: 062
     Dates: start: 20070601
  3. FENTANYL TRANSDERMAL SYSTEM [Suspect]
     Indication: LORDOSIS
     Dosage: 25 UG/HR; EVERY 3 DAYS; TRANSDERMAL
     Route: 062
     Dates: start: 20070601
  4. FENTANYL TRANSDERMAL SYSTEM [Suspect]
     Indication: MYALGIA
     Dosage: 25 UG/HR; EVERY 3 DAYS; TRANSDERMAL
     Route: 062
     Dates: start: 20070601
  5. FENTANYL TRANSDERMAL SYSTEM [Suspect]
     Indication: TEMPOROMANDIBULAR JOINT SYNDROME
     Dosage: 25 UG/HR; EVERY 3 DAYS; TRANSDERMAL
     Route: 062
     Dates: start: 20070601
  6. FENTANYL TRANSDERMAL SYSTEM [Suspect]
     Indication: ARTHRALGIA
     Dosage: 100 UG/HR; EVERY 3 DAYS; TRANSDERMAL
     Route: 062
     Dates: start: 20040101
  7. FENTANYL TRANSDERMAL SYSTEM [Suspect]
     Indication: BACK PAIN
     Dosage: 100 UG/HR; EVERY 3 DAYS; TRANSDERMAL
     Route: 062
     Dates: start: 20040101
  8. FENTANYL TRANSDERMAL SYSTEM [Suspect]
     Indication: LORDOSIS
     Dosage: 100 UG/HR; EVERY 3 DAYS; TRANSDERMAL
     Route: 062
     Dates: start: 20040101
  9. FENTANYL TRANSDERMAL SYSTEM [Suspect]
     Indication: MYALGIA
     Dosage: 100 UG/HR; EVERY 3 DAYS; TRANSDERMAL
     Route: 062
     Dates: start: 20040101
  10. FENTANYL TRANSDERMAL SYSTEM [Suspect]
     Indication: SPINAL OSTEOARTHRITIS
     Dosage: 100 UG/HR; EVERY 3 DAYS; TRANSDERMAL
     Route: 062
     Dates: start: 20040101
  11. SOMA [Concomitant]
  12. OXYCODONE HYDROCHLORIDE W/PARACETAMOL [Concomitant]
  13. EFFEXOR XR [Concomitant]

REACTIONS (5)
  - CONVULSION [None]
  - DIZZINESS [None]
  - HALLUCINATION, VISUAL [None]
  - LOSS OF CONSCIOUSNESS [None]
  - TREMOR [None]
